FAERS Safety Report 5015955-4 (Version None)
Quarter: 2006Q2

REPORT INFORMATION
  Report Type: 
  Country: None (occurrence: None)
  Receive Date: 20060426
  Receipt Date: 20060215
  Transmission Date: 20061013
  Serious: Yes (Hospitalization)
  Sender: FDA-Public Use
  Company Number: US166213

PATIENT
  Age: 63 Year
  Sex: Male

DRUGS (1)
  1. SENSIPAR [Suspect]
     Indication: HYPERPARATHYROIDISM SECONDARY
     Dosage: 60 MG, 1 IN 1 DAYS,PO
     Route: 048
     Dates: start: 20051222, end: 20060123

REACTIONS (4)
  - CONDITION AGGRAVATED [None]
  - GANGRENE [None]
  - HYPERKALAEMIA [None]
  - HYPOCALCAEMIA [None]
